FAERS Safety Report 8976247 (Version 3)
Quarter: 2013Q2

REPORT INFORMATION
  Report Type: Spontaneous
  Country: FR (occurrence: FR)
  Receive Date: 20121220
  Receipt Date: 20130506
  Transmission Date: 20140414
  Serious: Yes (Hospitalization, Other)
  Sender: FDA-Public Use
  Company Number: FR-PFIZER INC-2012316695

PATIENT
  Age: 77 Year
  Sex: Male
  Weight: 77 kg

DRUGS (9)
  1. SUTENT [Suspect]
     Indication: RENAL CANCER METASTATIC
     Dosage: 50 MG, 2X/DAY
     Route: 048
     Dates: start: 20121030, end: 20121114
  2. SUTENT [Suspect]
     Dosage: 50 MG, 1X/DAY
     Route: 048
     Dates: start: 201212, end: 20121211
  3. SUTENT [Suspect]
     Dosage: 37.5 MG, 1X/DAY
     Dates: start: 20130115
  4. LOVENOX [Suspect]
     Indication: PROPHYLAXIS
     Dosage: 0.7
     Dates: start: 2012, end: 201211
  5. COVERSYL [Concomitant]
     Dosage: 2.5 MG, UNK
  6. DIAMICRON [Concomitant]
  7. LERCANIDIPINE HYDROCHLORIDE [Concomitant]
  8. XELEVIA [Concomitant]
     Dosage: 100 MG, UNK
  9. PRAVASTATIN SODIUM [Concomitant]

REACTIONS (6)
  - Drug prescribing error [Unknown]
  - Incorrect dose administered [Unknown]
  - Mallory-Weiss syndrome [Recovered/Resolved]
  - Thrombocytopenia [Recovered/Resolved]
  - Thrombocytopenia [Recovered/Resolved]
  - Haematemesis [Recovered/Resolved]
